FAERS Safety Report 4869677-0 (Version None)
Quarter: 2005Q4

REPORT INFORMATION
  Report Type: 
  Country: None (occurrence: None)
  Receive Date: 20051223
  Receipt Date: 20051220
  Transmission Date: 20060501
  Serious: Yes (Death)
  Sender: FDA-Public Use
  Company Number: FRWYE252921DEC05

PATIENT
  Age: 70 Year
  Sex: Male

DRUGS (1)
  1. GEMTUZUMAB OZOGAMICIN (GEMTUZUMAB OZOGAMICIN, INJECTION, 0) LOT NO.: U [Suspect]
     Indication: ACUTE MYELOID LEUKAEMIA
     Dates: start: 20050101

REACTIONS (3)
  - ACUTE MYELOID LEUKAEMIA [None]
  - BRONCHOPULMONARY ASPERGILLOSIS [None]
  - MALIGNANT NEOPLASM PROGRESSION [None]
